FAERS Safety Report 5751511-8 (Version None)
Quarter: 2008Q2

REPORT INFORMATION
  Report Type: 
  Country: None (occurrence: None)
  Receive Date: 20080528
  Receipt Date: 20080515
  Transmission Date: 20081010
  Serious: Yes (Other)
  Sender: FDA-Public Use
  Company Number: PHHO2007BR12418

PATIENT
  Age: 62 Year
  Sex: Female

DRUGS (5)
  1. GALVUS MET [Suspect]
     Indication: DIABETES MELLITUS
     Dosage: 100 MG, QD
     Route: 048
     Dates: end: 20080201
  2. SYNTHROID [Concomitant]
     Indication: HYPOTHYROIDISM
  3. GLIOTEN [Concomitant]
     Indication: HYPERTENSION
     Dosage: 10 MG, UNK
  4. GLUCOFORMIN [Concomitant]
     Indication: DIABETES MELLITUS
  5. INSULIN [Concomitant]
     Dosage: 24 IN THE MORNING AND 16 IN THE NIGHUNK, UNK

REACTIONS (1)
  - DRUG INEFFECTIVE [None]
